FAERS Safety Report 18097894 (Version 1)
Quarter: 2020Q3

REPORT INFORMATION
  Report Type: Spontaneous
  Country: NL (occurrence: NL)
  Receive Date: 20200731
  Receipt Date: 20200731
  Transmission Date: 20201103
  Serious: Yes (Hospitalization, Other)
  Sender: FDA-Public Use
  Company Number: NL-ACCORD-193611

PATIENT
  Age: 78 Year
  Sex: Male

DRUGS (9)
  1. METOPROLOL. [Concomitant]
     Active Substance: METOPROLOL
     Dosage: 2DD1,STRENGTH?25MG
  2. OMEPRAZOLE. [Concomitant]
     Active Substance: OMEPRAZOLE
     Dosage: 20 MG, QD
     Route: 065
  3. ROSUVASTATIN. [Interacting]
     Active Substance: ROSUVASTATIN
     Indication: HYPERCHOLESTEROLAEMIA
     Dosage: 1DD4 40 MG, QD
     Route: 048
  4. TICAGRELOR. [Interacting]
     Active Substance: TICAGRELOR
     Indication: PRODUCT USED FOR UNKNOWN INDICATION
     Dosage: 2DD1
     Route: 048
     Dates: start: 20130924
  5. TICAGRELOR. [Interacting]
     Active Substance: TICAGRELOR
     Indication: PRODUCT USED FOR UNKNOWN INDICATION
     Dosage: 2DD1
     Route: 048
     Dates: start: 20130924
  6. PERINDOPRIL [Suspect]
     Active Substance: PERINDOPRIL
     Indication: PRODUCT USED FOR UNKNOWN INDICATION
     Dosage: 2 MG, BID
     Route: 065
  7. EZETIMIBE. [Suspect]
     Active Substance: EZETIMIBE
     Indication: HYPERCHOLESTEROLAEMIA
     Dosage: 10 MG, QD
     Route: 048
  8. AMLODIPINE [Concomitant]
     Active Substance: AMLODIPINE BESYLATE
     Route: 065
  9. PERINDOPRIL [Suspect]
     Active Substance: PERINDOPRIL
     Indication: PRODUCT USED FOR UNKNOWN INDICATION
     Dosage: 2 MG, BID
     Route: 065

REACTIONS (14)
  - Drug interaction [Unknown]
  - Muscle spasms [Recovered/Resolved]
  - Pain [Recovered/Resolved]
  - Blood creatine phosphokinase increased [Recovering/Resolving]
  - Nausea [Recovered/Resolved]
  - Blood creatinine increased [Recovering/Resolving]
  - Proteinuria [Recovered/Resolved]
  - Vomiting [Recovered/Resolved]
  - Myalgia [Recovered/Resolved]
  - Renal failure [Recovering/Resolving]
  - Rhabdomyolysis [Recovered/Resolved]
  - Acute kidney injury [Recovering/Resolving]
  - Condition aggravated [Recovered/Resolved]
  - Dehydration [Recovered/Resolved]

NARRATIVE: CASE EVENT DATE: 20131028
